FAERS Safety Report 7016818-5 (Version None)
Quarter: 2010Q3

REPORT INFORMATION
  Report Type: 
  Country: None (occurrence: None)
  Receive Date: 20100927
  Receipt Date: 20100914
  Transmission Date: 20110219
  Serious: Yes (Hospitalization)
  Sender: FDA-Public Use
  Company Number: DE-WATSON-2010-12675

PATIENT
  Age: 17 Year
  Sex: Female

DRUGS (4)
  1. ALBUTEROL SULFATE AUTOHALER [Suspect]
     Indication: ASTHMA
     Dosage: 0.2 MG/DOSE EVERY 2-3H
     Route: 055
  2. ALBUTEROL SULFATE AUTOHALER [Suspect]
     Dosage: 1 MCG/KG/10MIN LOADING, THEN 0.2-0.4MG/KG/MIN
     Route: 042
  3. PREDNISOLONE ACETATE [Suspect]
     Indication: ASTHMA
     Dosage: 50 MG, BID
     Route: 042
  4. THEOPHYLLINE [Suspect]
     Indication: ASTHMA
     Dosage: 5/MG/KG LOADING THEN 15 MG/KG/24 HOURS
     Route: 042

REACTIONS (3)
  - BLOOD GLUCOSE INCREASED [None]
  - BLOOD PYRUVIC ACID INCREASED [None]
  - LACTIC ACIDOSIS [None]
